FAERS Safety Report 24035541 (Version 3)
Quarter: 2024Q3

REPORT INFORMATION
  Report Type: Spontaneous
  Country: CA (occurrence: CA)
  Receive Date: 20240701
  Receipt Date: 20240823
  Transmission Date: 20241017
  Serious: Yes (Hospitalization, Other)
  Sender: PFIZER
  Company Number: CA-PFIZER INC-202400202764

PATIENT
  Age: 54 Year
  Sex: Male

DRUGS (2)
  1. SOMAVERT [Suspect]
     Active Substance: PEGVISOMANT
     Indication: Acromegaly
     Dosage: 20 MG, 1X/DAY
     Route: 058
     Dates: start: 20160212
  2. SANDOSTATIN [Concomitant]
     Active Substance: OCTREOTIDE ACETATE
     Dosage: 1 DF, EVERY 3 WEEKS

REACTIONS (4)
  - Road traffic accident [Unknown]
  - Upper limb fracture [Unknown]
  - Foot fracture [Unknown]
  - Wound [Unknown]

NARRATIVE: CASE EVENT DATE: 20240101
